FAERS Safety Report 17027014 (Version 1)
Quarter: 2019Q4

REPORT INFORMATION
  Report Type: Spontaneous
  Country: US (occurrence: US)
  Receive Date: 20191010
  Receipt Date: 20191010
  Transmission Date: 20200122
  Serious: No
  Sender: FDA-Public Use
  Company Number: None

PATIENT
  Age: 60 Year
  Sex: Female

DRUGS (1)
  1. FULVESTRANT 250MG/5ML PFS (2/BOX) [Suspect]
     Active Substance: FULVESTRANT
     Indication: BREAST CANCER FEMALE
     Dosage: ?          OTHER FREQUENCY:OT;?
     Route: 030
     Dates: start: 201910

REACTIONS (1)
  - Pain [None]

NARRATIVE: CASE EVENT DATE: 20191003
